FAERS Safety Report 9757865 (Version 1)
Quarter: 2013Q4

REPORT INFORMATION
  Report Type: Report from Study
  Country: BR (occurrence: BR)
  Receive Date: 20131216
  Receipt Date: 20131216
  Transmission Date: 20140711
  Serious: Yes (Hospitalization)
  Sender: FDA-Public Use
  Company Number: BR-ROCHE-1319344

PATIENT
  Sex: Female
  Weight: 65 kg

DRUGS (2)
  1. MABTHERA [Suspect]
     Indication: RHEUMATOID ARTHRITIS
     Dosage: THE LATEST INFUSION WAS RECEIVED ON 03/DEC/2013
     Route: 065
     Dates: start: 2010
  2. LOSARTAN [Concomitant]

REACTIONS (1)
  - Cataract [Unknown]
